FAERS Safety Report 20007400 (Version 1)
Quarter: 2021Q4

REPORT INFORMATION
  Report Type: Report from Study
  Country: US (occurrence: US)
  Receive Date: 20211028
  Receipt Date: 20211028
  Transmission Date: 20220303
  Serious: Yes (Hospitalization, Other)
  Sender: FDA-Public Use
  Company Number: US-BOEHRINGERINGELHEIM-2020-MR-030786

PATIENT
  Age: 73 Year
  Sex: Female

DRUGS (3)
  1. OFEV [Suspect]
     Active Substance: NINTEDANIB
     Indication: Interstitial lung disease
     Route: 048
     Dates: start: 20200617
  2. OFEV [Suspect]
     Active Substance: NINTEDANIB
     Route: 048
     Dates: start: 20200808
  3. OFEV [Suspect]
     Active Substance: NINTEDANIB
     Route: 048
     Dates: start: 20200902

REACTIONS (24)
  - Cardiac disorder [Unknown]
  - Pneumonia [Unknown]
  - Pulmonary haemorrhage [Unknown]
  - Sinus disorder [Unknown]
  - Urinary tract infection [Unknown]
  - Somnolence [Recovered/Resolved]
  - Faeces discoloured [Unknown]
  - Productive cough [Unknown]
  - Heart rate increased [Recovering/Resolving]
  - Heart rate decreased [Recovering/Resolving]
  - Diarrhoea [Not Recovered/Not Resolved]
  - Vomiting [Not Recovered/Not Resolved]
  - Migraine [Unknown]
  - Diarrhoea [Unknown]
  - Hypertension [Unknown]
  - Sputum discoloured [Unknown]
  - Dehydration [Unknown]
  - Muscle spasms [Unknown]
  - Movement disorder [Unknown]
  - Asthenia [Unknown]
  - Speech disorder [Unknown]
  - Weight increased [Unknown]
  - Swelling [Unknown]
  - Presyncope [Unknown]

NARRATIVE: CASE EVENT DATE: 20200101
